FAERS Safety Report 6611284-3 (Version None)
Quarter: 2010Q1

REPORT INFORMATION
  Report Type: 
  Country: None (occurrence: None)
  Receive Date: 20100301
  Receipt Date: 20100301
  Transmission Date: 20100710
  Serious: No
  Sender: FDA-Public Use
  Company Number: None

PATIENT
  Age: 37 Year
  Sex: Female
  Weight: 42.1845 kg

DRUGS (8)
  1. SUMATRIPTAN SUCCINATE [Suspect]
     Indication: MIGRAINE
     Dosage: 100 MG AS NEEDED ORAL
     Route: 048
     Dates: start: 20090702, end: 20090925
  2. SUMATRIPTAN SUCCINATE [Suspect]
     Indication: MIGRAINE
     Dosage: 100 MG AS NEEDED ORAL
     Route: 048
     Dates: start: 20090512, end: 20090701
  3. LEVOTHYROXINE [Concomitant]
  4. METHYLPHENIDATE [Concomitant]
  5. LEVONORGESTREL [Concomitant]
  6. SEASONIQUE [Concomitant]
  7. ALPRAZOLAM [Concomitant]
  8. BUPROPION HCL [Concomitant]

REACTIONS (4)
  - DRUG INEFFECTIVE [None]
  - PRODUCT SUBSTITUTION ISSUE [None]
  - TREATMENT FAILURE [None]
  - VOMITING [None]
